FAERS Safety Report 9896093 (Version 1)
Quarter: 2014Q1

REPORT INFORMATION
  Report Type: Spontaneous
  Country: US (occurrence: US)
  Receive Date: 20140213
  Receipt Date: 20140213
  Transmission Date: 20141002
  Serious: No
  Sender: FDA-Public Use
  Company Number: US-BRISTOL-MYERS SQUIBB COMPANY-19058353

PATIENT
  Age: 40 Year
  Sex: Female
  Weight: 90.7 kg

DRUGS (16)
  1. ORENCIA [Suspect]
     Indication: RHEUMATOID ARTHRITIS
     Route: 058
     Dates: start: 201304, end: 201305
  2. METHOTREXATE [Concomitant]
  3. MULTIVITAMIN [Concomitant]
  4. FOLIC ACID [Concomitant]
  5. VITAMIN D [Concomitant]
  6. ALLEGRA [Concomitant]
  7. PRILOSEC [Concomitant]
  8. EVENING PRIMROSE OIL [Concomitant]
  9. YAZ [Concomitant]
  10. CALCIUM [Concomitant]
  11. LEVOXYL [Concomitant]
  12. BIOTIN [Concomitant]
  13. FERROUS SULFATE [Concomitant]
  14. SPIRONOLACTONE [Concomitant]
  15. DOXYCYCLINE [Concomitant]
  16. PROSCAR [Concomitant]

REACTIONS (1)
  - Migraine [Not Recovered/Not Resolved]
